FAERS Safety Report 5016030-5 (Version None)
Quarter: 2006Q2

REPORT INFORMATION
  Report Type: 
  Country: None (occurrence: None)
  Receive Date: 20060531
  Receipt Date: 20060531
  Transmission Date: 20061013
  Serious: Yes (Hospitalization)
  Sender: FDA-Public Use
  Company Number: None

PATIENT
  Age: 80 Year
  Sex: Male
  Weight: 77.1115 kg

DRUGS (2)
  1. CIPRO [Suspect]
     Indication: URINARY TRACT INFECTION
     Dosage: 400 MG Q12 HRS IV
     Route: 042
     Dates: start: 20060504, end: 20060508
  2. CIPRO [Suspect]
     Indication: URINARY TRACT INFECTION
     Dosage: 400 MG Q12 HR IV
     Route: 042
     Dates: start: 20060407, end: 20060409

REACTIONS (1)
  - DIARRHOEA [None]
